FAERS Safety Report 10486828 (Version 1)
Quarter: 2014Q4

REPORT INFORMATION
  Report Type: Spontaneous
  Country: JP (occurrence: JP)
  Receive Date: 20141001
  Receipt Date: 20141001
  Transmission Date: 20150528
  Serious: Yes (Other)
  Sender: FDA-Public Use
  Company Number: JP-ASTELLAS-2014US013525

PATIENT
  Age: 69 Year
  Sex: Male

DRUGS (4)
  1. ANCOTIL [Suspect]
     Active Substance: FLUCYTOSINE
     Indication: MENINGITIS CRYPTOCOCCAL
     Route: 048
     Dates: start: 20140305, end: 20140425
  2. AMBISOME [Suspect]
     Active Substance: AMPHOTERICIN B
     Indication: MENINGITIS CRYPTOCOCCAL
     Route: 042
     Dates: start: 20140304, end: 20140425
  3. VFEND [Suspect]
     Active Substance: VORICONAZOLE
     Indication: MENINGITIS CRYPTOCOCCAL
     Route: 042
     Dates: start: 20140426, end: 20140508
  4. ANCOTIL [Suspect]
     Active Substance: FLUCYTOSINE
     Indication: CRYPTOCOCCOSIS

REACTIONS (4)
  - Visual impairment [Recovered/Resolved]
  - Altered state of consciousness [Recovered/Resolved]
  - Drug ineffective [Unknown]
  - Headache [Unknown]

NARRATIVE: CASE EVENT DATE: 20140427
